FAERS Safety Report 6148640-6 (Version None)
Quarter: 2009Q2

REPORT INFORMATION
  Report Type: 
  Country: None (occurrence: None)
  Receive Date: 20090408
  Receipt Date: 20090331
  Transmission Date: 20091009
  Serious: Yes (Other)
  Sender: FDA-Public Use
  Company Number: TR-WATSON-2009-02157

PATIENT
  Age: 40 Year
  Sex: Male

DRUGS (1)
  1. CYCLOSPORINE [Suspect]
     Indication: BEHCET'S SYNDROME
     Dosage: 3 MG/KG, DAILY

REACTIONS (2)
  - HEMIANOPIA [None]
  - HEMIPARESIS [None]
